FAERS Safety Report 9448332 (Version 2)
Quarter: 2013Q3

REPORT INFORMATION
  Report Type: Spontaneous
  Country: US (occurrence: US)
  Receive Date: 20130808
  Receipt Date: 20130813
  Transmission Date: 20140515
  Serious: Yes (Death)
  Sender: FDA-Public Use
  Company Number: US-009507513-1308USA002820

PATIENT
  Age: 79 Year
  Sex: Male

DRUGS (2)
  1. MK-0000 (001) [Suspect]
     Dosage: UNK
     Route: 048
     Dates: start: 20130712
  2. [THERAPY UNSPECIFIED] [Suspect]
     Dosage: UNK
     Route: 048
     Dates: start: 20130712

REACTIONS (1)
  - Death [Fatal]
